FAERS Safety Report 9496328 (Version 1)
Quarter: 2013Q3

REPORT INFORMATION
  Report Type: Spontaneous
  Country: DE (occurrence: None)
  Receive Date: 20130829
  Receipt Date: 20130829
  Transmission Date: 20140515
  Serious: Yes (Other)
  Sender: FDA-Public Use
  Company Number: 1308-1086

PATIENT
  Age: 79 Year
  Sex: Female

DRUGS (1)
  1. EYLEA (AFLIBERCEPT) (INJECTION) (AFLIBERCEPT) [Suspect]
     Indication: AGE-RELATED MACULAR DEGENERATION
     Dosage: 1 IN 8 WK
     Dates: start: 20121115

REACTIONS (4)
  - Gastroenteritis [None]
  - Diarrhoea [None]
  - Visual acuity reduced [None]
  - Eye haemorrhage [None]
